FAERS Safety Report 7472879-0 (Version None)
Quarter: 2011Q2

REPORT INFORMATION
  Report Type: 
  Country: None (occurrence: None)
  Receive Date: 20110503
  Receipt Date: 20110422
  Transmission Date: 20111010
  Serious: Yes (Hospitalization, Other)
  Sender: FDA-Public Use
  Company Number: TPA2011A01805

PATIENT
  Age: 60 Year
  Sex: Male
  Weight: 117.9352 kg

DRUGS (1)
  1. ACTOS [Suspect]
     Indication: DIABETES MELLITUS
     Dosage: 1 IN 1 D, PER ORAL
     Route: 048
     Dates: start: 20070901, end: 20090201

REACTIONS (2)
  - CARDIAC ARREST [None]
  - CARDIAC FAILURE CONGESTIVE [None]
